FAERS Safety Report 8011814-3 (Version None)
Quarter: 2011Q4

REPORT INFORMATION
  Report Type: 
  Country: None (occurrence: None)
  Receive Date: 20111228
  Receipt Date: 20111227
  Transmission Date: 20120403
  Serious: Yes (Death)
  Sender: FDA-Public Use
  Company Number: FR-PFIZER INC-2011300427

PATIENT
  Age: 60 Year
  Sex: Female
  Weight: 69 kg

DRUGS (10)
  1. AMIKACIN [Concomitant]
     Indication: PERITONITIS BACTERIAL
     Dosage: 1.2 G, 1X/DAY
     Route: 042
     Dates: start: 20111119, end: 20111120
  2. VANCOMYCIN [Concomitant]
     Indication: PERITONITIS BACTERIAL
     Dosage: 4 G, 1X/DAY
     Route: 042
     Dates: start: 20111119
  3. VANCOMYCIN [Concomitant]
     Dosage: 2.5 G, 1X/DAY
     Route: 042
  4. OXACILLIN [Concomitant]
     Indication: PERITONITIS BACTERIAL
     Dosage: 2 G, 6X/DAY
     Route: 042
     Dates: start: 20111122, end: 20111126
  5. FLUCONAZOLE [Concomitant]
     Indication: PERITONITIS BACTERIAL
     Dosage: 600 MG, 1X/DAY
     Route: 042
     Dates: start: 20111119
  6. FLUCONAZOLE [Concomitant]
     Dosage: 400 MG, 1X/DAY
     Route: 042
     Dates: end: 20111120
  7. VFEND [Suspect]
     Indication: INFECTIOUS PERITONITIS
     Dosage: 400 MG, 2X/DAY, DAY 1
     Route: 042
     Dates: start: 20111121
  8. VANCOMYCIN [Concomitant]
     Dosage: 1.5 G, 1X/DAY
     Route: 042
     Dates: end: 20111121
  9. VFEND [Suspect]
     Dosage: 300 MG, 2X/DAY
     Route: 042
     Dates: start: 20111122
  10. TIENAM [Concomitant]
     Indication: PERITONITIS BACTERIAL
     Dosage: 500 MG, 3X/DAY
     Route: 042
     Dates: start: 20111119, end: 20111120

REACTIONS (2)
  - MULTI-ORGAN FAILURE [None]
  - ERYTHEMA [None]
